FAERS Safety Report 20111876 (Version 1)
Quarter: 2021Q4

REPORT INFORMATION
  Report Type: Spontaneous
  Country: GB (occurrence: GB)
  Receive Date: 20211125
  Receipt Date: 20211125
  Transmission Date: 20220303
  Serious: Yes (Other)
  Sender: FDA-Public Use
  Company Number: GB-MHRA-EYC 00265093

PATIENT
  Age: 39 Year
  Sex: Female
  Weight: 55.78 kg

DRUGS (3)
  1. TOPIRAMATE [Suspect]
     Active Substance: TOPIRAMATE
     Indication: Ill-defined disorder
     Dosage: 25MG INITIALLY FOR 1 WEEK, UPPED TO 50MG FOR X3 DAYS, REDUCED TO 25MG FOR REMAINDER.
     Route: 048
     Dates: start: 20210924, end: 20211005
  2. TOPIRAMATE [Suspect]
     Active Substance: TOPIRAMATE
     Indication: Migraine prophylaxis
  3. METOCLOPRAMIDE [Concomitant]
     Active Substance: METOCLOPRAMIDE
     Indication: Ill-defined disorder
     Dosage: UNK
     Route: 065

REACTIONS (5)
  - Anxiety [Recovering/Resolving]
  - Hyperaesthesia teeth [Recovering/Resolving]
  - Gingival pain [Recovering/Resolving]
  - Cough [Recovered/Resolved]
  - Speech disorder [Recovered/Resolved]

NARRATIVE: CASE EVENT DATE: 20210925
